FAERS Safety Report 10776791 (Version 1)
Quarter: 2015Q1

REPORT INFORMATION
  Report Type: Spontaneous
  Country: US (occurrence: None)
  Receive Date: 20150205
  Receipt Date: 20150205
  Transmission Date: 20150721
  Serious: No
  Sender: FDA-Public Use
  Company Number: None

PATIENT
  Age: 71 Year
  Sex: Female
  Weight: 65.77 kg

DRUGS (1)
  1. AMBIEN [Suspect]
     Active Substance: ZOLPIDEM TARTRATE
     Indication: INSOMNIA
     Dosage: TAKE 1 TABLET BEFORE BEDTIME, AT BEDTIME, TAKEN BY MOUTH
     Route: 048
     Dates: start: 199601

REACTIONS (5)
  - Drug ineffective [None]
  - Abdominal pain [None]
  - Initial insomnia [None]
  - Product substitution issue [None]
  - Abdominal discomfort [None]

NARRATIVE: CASE EVENT DATE: 20150103
